FAERS Safety Report 23848502 (Version 1)
Quarter: 2024Q2

REPORT INFORMATION
  Report Type: Spontaneous
  Country: US (occurrence: None)
  Receive Date: 20240511
  Receipt Date: 20240511
  Transmission Date: 20240716
  Serious: Yes (Hospitalization)
  Sender: FDA-Public Use
  Company Number: None

PATIENT
  Age: 29 Year
  Sex: Female
  Weight: 92 kg

DRUGS (1)
  1. BACITRACIN [Suspect]
     Active Substance: BACITRACIN
     Indication: Pain
     Route: 061
     Dates: start: 20220301, end: 20220301

REACTIONS (1)
  - Rash [None]

NARRATIVE: CASE EVENT DATE: 20220301
